FAERS Safety Report 10243495 (Version 2)
Quarter: 2014Q3

REPORT INFORMATION
  Report Type: Spontaneous
  Country: US (occurrence: None)
  Receive Date: 20140616
  Receipt Date: 20140702
  Transmission Date: 20150326
  Serious: Yes (Other)
  Sender: FDA-Public Use
  Company Number: US-PULSION-2014-0040

PATIENT
  Age: 55 Year
  Sex: Female

DRUGS (4)
  1. CHANTIX [Concomitant]
     Active Substance: VARENICLINE TARTRATE
  2. ICG-PULSION [Suspect]
     Active Substance: INDOCYANINE GREEN
     Route: 040
     Dates: start: 20140423, end: 20140423
  3. RISPERIDONE. [Concomitant]
     Active Substance: RISPERIDONE
  4. CLINDAMYCIN [Concomitant]
     Active Substance: CLINDAMYCIN\CLINDAMYCIN PHOSPHATE

REACTIONS (1)
  - Hypersensitivity [None]

NARRATIVE: CASE EVENT DATE: 20140423
